FAERS Safety Report 8422309 (Version 2)
Quarter: 2013Q1

REPORT INFORMATION
  Report Type: Report from Study
  Country: DE (occurrence: DE)
  Receive Date: 20120223
  Receipt Date: 20130219
  Transmission Date: 20140127
  Serious: Yes (Life-Threatening, Hospitalization, Other)
  Sender: FDA-Public Use
  Company Number: DE-SANOFI-AVENTIS-2012SA010862

PATIENT
  Age: 52 Year
  Sex: Female
  Weight: 57.5 kg

DRUGS (6)
  1. DOCETAXEL [Suspect]
     Indication: HYPOPHARYNGEAL CANCER
     Route: 041
     Dates: start: 20120206, end: 20120206
  2. CISPLATIN [Suspect]
     Indication: HYPOPHARYNGEAL CANCER
     Route: 041
     Dates: start: 20120206, end: 20120206
  3. DEXAMETHASONE [Suspect]
     Indication: ANTIINFLAMMATORY THERAPY
     Route: 048
     Dates: start: 20120207, end: 20120207
  4. KEVATRIL [Suspect]
     Indication: ANTIEMETIC SUPPORTIVE CARE
     Route: 042
     Dates: start: 20120206, end: 20120206
  5. TAVANIC [Suspect]
     Indication: ANTIBIOTIC THERAPY
     Route: 048
     Dates: start: 20120206, end: 20120215
  6. HYDROCHLOROTHIAZIDE/QUINAPRIL HYDROCHLORIDE [Concomitant]
     Indication: PRODUCT USED FOR UNKNOWN INDICATION
     Dates: start: 2004

REACTIONS (3)
  - Hypercreatininaemia [Recovered/Resolved]
  - Leukopenia [Recovered/Resolved]
  - Neutropenia [Recovered/Resolved]
